FAERS Safety Report 20020475 (Version 4)
Quarter: 2021Q4

REPORT INFORMATION
  Report Type: Spontaneous
  Country: IT (occurrence: IT)
  Receive Date: 20211101
  Receipt Date: 20211123
  Transmission Date: 20220304
  Serious: Yes (Other)
  Sender: FDA-Public Use
  Company Number: IT-NOVARTISPH-NVSC2021IT241515

PATIENT
  Age: 59 Year
  Sex: Female

DRUGS (4)
  1. BEOVU [Suspect]
     Active Substance: BROLUCIZUMAB-DBLL
     Indication: Product used for unknown indication
     Dosage: 6 MG, QMO (LEFT EYE)
     Route: 031
     Dates: start: 20210722
  2. BEOVU [Suspect]
     Active Substance: BROLUCIZUMAB-DBLL
     Dosage: 6 MG, QMO (LEFT EYE)
     Route: 031
     Dates: start: 20210902
  3. BEOVU [Suspect]
     Active Substance: BROLUCIZUMAB-DBLL
     Dosage: 6 MG, QMO (LEFT EYE)
     Route: 031
     Dates: start: 20210930
  4. ASPIRIN [Concomitant]
     Active Substance: ASPIRIN
     Indication: Product used for unknown indication
     Dosage: 100 MG, QD
     Route: 065

REACTIONS (10)
  - Optic discs blurred [Recovering/Resolving]
  - Retinal oedema [Recovering/Resolving]
  - Retinal exudates [Recovering/Resolving]
  - Choroidal infarction [Not Recovered/Not Resolved]
  - Vitritis [Recovering/Resolving]
  - Visual acuity reduced [Unknown]
  - Vitreal cells [Recovering/Resolving]
  - Ocular hyperaemia [Recovering/Resolving]
  - Eye pain [Recovered/Resolved]
  - Drug ineffective [Unknown]

NARRATIVE: CASE EVENT DATE: 20211015
